FAERS Safety Report 8531461-4 (Version None)
Quarter: 2012Q3

REPORT INFORMATION
  Report Type: 
  Country: None (occurrence: None)
  Receive Date: 20120723
  Receipt Date: 20120708
  Transmission Date: 20120928
  Serious: Yes (Other)
  Sender: FDA-Public Use
  Company Number: US-JNJFOC-20120710581

PATIENT
  Sex: Female

DRUGS (2)
  1. TYLENOL [Suspect]
     Route: 048
  2. TYLENOL [Suspect]
     Indication: PAIN
     Dosage: FOR DECADES
     Route: 048

REACTIONS (3)
  - CROHN'S DISEASE [None]
  - INCREASED UPPER AIRWAY SECRETION [None]
  - DIABETES MELLITUS [None]
